FAERS Safety Report 10302578 (Version 4)
Quarter: 2015Q2

REPORT INFORMATION
  Report Type: Spontaneous
  Country: US (occurrence: US)
  Receive Date: 20140714
  Receipt Date: 20150528
  Transmission Date: 20150821
  Serious: Yes (Hospitalization, Other)
  Sender: FDA-Public Use
  Company Number: US-ACORDA-ACO_104678_2014

PATIENT
  Sex: Female

DRUGS (2)
  1. COPAXONE [Suspect]
     Active Substance: GLATIRAMER ACETATE
     Indication: PRODUCT USED FOR UNKNOWN INDICATION
     Dosage: UNK
     Route: 065
     Dates: start: 200601
  2. AMPYRA [Suspect]
     Active Substance: DALFAMPRIDINE
     Indication: GAIT DISTURBANCE
     Dosage: 10 MG, BID
     Route: 048
     Dates: start: 201003, end: 2014

REACTIONS (11)
  - Constipation [Unknown]
  - Headache [Unknown]
  - Asthenia [Recovered/Resolved]
  - Enzyme abnormality [Unknown]
  - Sleep disorder [Unknown]
  - Temperature intolerance [Unknown]
  - Vomiting [Recovered/Resolved]
  - Gastrointestinal disorder [Unknown]
  - Catheterisation cardiac [Unknown]
  - Stress [Unknown]
  - Bladder disorder [Unknown]

NARRATIVE: CASE EVENT DATE: 2011
